FAERS Safety Report 8585608 (Version 2)
Quarter: 2013Q2

REPORT INFORMATION
  Report Type: Spontaneous
  Country: US (occurrence: US)
  Receive Date: 20120530
  Receipt Date: 20130530
  Transmission Date: 20140414
  Serious: No
  Sender: FDA-Public Use
  Company Number: US-GLAXOSMITHKLINE-A0929182A

PATIENT
  Age: 54 Year
  Sex: Male

DRUGS (1)
  1. FLOLAN [Suspect]
     Indication: PULMONARY ARTERIAL HYPERTENSION
     Dosage: 8NGKM SEE DOSAGE TEXT
     Route: 042
     Dates: start: 20100415

REACTIONS (3)
  - Pruritus generalised [Unknown]
  - Infusion site pruritus [Unknown]
  - Infusion site pain [Unknown]
